FAERS Safety Report 21996590 (Version 1)
Quarter: 2023Q1

REPORT INFORMATION
  Report Type: Spontaneous
  Country: US (occurrence: US)
  Receive Date: 20230215
  Receipt Date: 20230215
  Transmission Date: 20230417
  Serious: No
  Sender: FDA-Public Use
  Company Number: US-ALLERGAN-2227294US

PATIENT
  Sex: Female

DRUGS (10)
  1. VIIBRYD [Suspect]
     Active Substance: VILAZODONE HYDROCHLORIDE
     Indication: Panic attack
     Dosage: 40 MG
     Route: 048
     Dates: end: 20220725
  2. VIIBRYD [Suspect]
     Active Substance: VILAZODONE HYDROCHLORIDE
     Indication: Generalised anxiety disorder
  3. VIIBRYD [Suspect]
     Active Substance: VILAZODONE HYDROCHLORIDE
     Indication: Major depression
  4. BUSPIRONE HCL [Concomitant]
     Active Substance: BUSPIRONE HYDROCHLORIDE
     Indication: Anxiety
     Dosage: 10 MG, TID
  5. ALPRAZOLAM [Concomitant]
     Active Substance: ALPRAZOLAM
     Indication: Insomnia
     Dosage: 0.5 MG, QD
  6. GABAPENTIN [Concomitant]
     Active Substance: GABAPENTIN
     Dosage: 200 MG, QD
  7. COVID-19 VACCINE [Concomitant]
     Indication: COVID-19 immunisation
     Dosage: 1ST DOSE PFIZER
     Route: 030
  8. COVID-19 VACCINE [Concomitant]
     Dosage: 2ND DOSE PFIZER
     Route: 030
  9. COVID-19 VACCINE [Concomitant]
     Dosage: 1ST BOOSTER PFIZER
     Route: 030
  10. COVID-19 VACCINE [Concomitant]
     Dosage: 2ND BOOSTER PFIZER
     Route: 030

REACTIONS (1)
  - Off label use [Unknown]
